FAERS Safety Report 4509157-5 (Version None)
Quarter: 2004Q4

REPORT INFORMATION
  Report Type: 
  Country: None (occurrence: None)
  Receive Date: 20041025
  Receipt Date: 20040806
  Transmission Date: 20050328
  Serious: Yes (Hospitalization)
  Sender: FDA-Public Use
  Company Number: US-JNJFOC-20040802600

PATIENT
  Age: 79 Year
  Sex: Male

DRUGS (8)
  1. INFLIXIMAB (INFLIXIMAB, RECOMBINANT) LYOPHILIZED POWDER [Suspect]
     Indication: RHEUMATOID ARTHRITIS
     Dosage: Q 8 WEEKS
     Dates: start: 20001001
  2. METHOTREXATE SODIUM [Concomitant]
  3. CALCIUM WITH VITAMIN D ( ) CALCIUM WITH VITAMIN D [Concomitant]
  4. FOLIC ACID [Concomitant]
  5. MULTIVITAMIN (MULTIVITAMINS) [Concomitant]
  6. LIPITOR [Concomitant]
  7. TYLENOL [Concomitant]
  8. DYAZIDE [Concomitant]

REACTIONS (1)
  - NEUROPATHY [None]
